FAERS Safety Report 9822832 (Version 2)
Quarter: 2014Q3

REPORT INFORMATION
  Report Type: Spontaneous
  Country: US (occurrence: US)
  Receive Date: 20140116
  Receipt Date: 20140823
  Transmission Date: 20150326
  Serious: Yes (Other)
  Sender: FDA-Public Use
  Company Number: US-009507513-1401USA006905

PATIENT
  Sex: Female
  Weight: 83.9 kg

DRUGS (1)
  1. NUVARING [Suspect]
     Active Substance: ETHINYL ESTRADIOL\ETONOGESTREL
     Indication: CONTRACEPTION
     Dosage: UNK
     Route: 067
     Dates: start: 20120116, end: 201205

REACTIONS (5)
  - Respiratory disorder [Unknown]
  - Pulmonary infarction [Unknown]
  - Pulmonary embolism [Unknown]
  - Pneumonia [Unknown]
  - Pulmonary embolism [Unknown]

NARRATIVE: CASE EVENT DATE: 20120504
